FAERS Safety Report 9227610 (Version 1)
Quarter: 2013Q2

REPORT INFORMATION
  Report Type: Spontaneous
  Country: FR (occurrence: FR)
  Receive Date: 20130412
  Receipt Date: 20130412
  Transmission Date: 20140414
  Serious: Yes (Hospitalization, Other)
  Sender: FDA-Public Use
  Company Number: FR-BAYER-2013-044212

PATIENT
  Age: 84 Year
  Sex: Female

DRUGS (12)
  1. CIFLOX [Suspect]
     Indication: URINARY TRACT INFECTION
     Dosage: 500 MG, BID
     Route: 048
     Dates: start: 20130207, end: 20130211
  2. AMLOR [Concomitant]
  3. CORDARONE [Concomitant]
  4. PREVISCAN [Concomitant]
  5. TRIATEC [Concomitant]
  6. HUMALOG [Concomitant]
  7. DEROXAT [Concomitant]
  8. LEXOMIL [Concomitant]
  9. TEMERIT [Concomitant]
  10. TARDYFERON [Concomitant]
  11. LASILIX [Concomitant]
  12. LEVOTHYROX [Concomitant]

REACTIONS (1)
  - Encephalopathy [Not Recovered/Not Resolved]
